FAERS Safety Report 9416136 (Version 1)
Quarter: 2013Q3

REPORT INFORMATION
  Report Type: Spontaneous
  Country: BR (occurrence: BR)
  Receive Date: 20130724
  Receipt Date: 20130724
  Transmission Date: 20140515
  Serious: Yes (Hospitalization, Other)
  Sender: FDA-Public Use
  Company Number: BR-ASTRAZENECA-2013SE54257

PATIENT
  Age: 32 Year
  Sex: Male
  Weight: 118 kg

DRUGS (6)
  1. ATACAND HCT [Suspect]
     Indication: HYPERTENSION
     Dosage: 16/12.5 MG
     Route: 048
     Dates: start: 2012
  2. OMEPRAZOLE (GENERIC) [Suspect]
     Indication: ABDOMINAL PAIN UPPER
     Route: 048
     Dates: start: 201305
  3. CLONAZEPAM [Suspect]
     Indication: INSOMNIA
     Dates: start: 20130701
  4. CLONAZEPAM [Suspect]
     Indication: RESTLESSNESS
     Dates: start: 20130701
  5. AMLODIPINE BESYLATE [Concomitant]
     Dates: start: 2012
  6. SERTRALINE HYDROCHLORIDE [Concomitant]
     Indication: ANXIETY
     Dates: start: 20130701

REACTIONS (7)
  - Hypertension [Not Recovered/Not Resolved]
  - Hypertensive crisis [Recovered/Resolved]
  - Abdominal pain upper [Not Recovered/Not Resolved]
  - Anxiety [Recovering/Resolving]
  - Insomnia [Not Recovered/Not Resolved]
  - Restlessness [Unknown]
  - Drug ineffective [Unknown]
